FAERS Safety Report 6132317-7 (Version None)
Quarter: 2009Q1

REPORT INFORMATION
  Report Type: 
  Country: None (occurrence: None)
  Receive Date: 20090324
  Receipt Date: 20090310
  Transmission Date: 20090719
  Serious: Yes (Other)
  Sender: FDA-Public Use
  Company Number: 2009EN000062

PATIENT
  Age: 13 Year

DRUGS (1)
  1. ONCASPAR [Suspect]
     Indication: DRUG USE FOR UNKNOWN INDICATION

REACTIONS (6)
  - CEREBRAL ISCHAEMIA [None]
  - DYSPNOEA [None]
  - HYPOTENSION [None]
  - NEUTROPHIL COUNT DECREASED [None]
  - RENAL FAILURE [None]
  - SOFT TISSUE NECROSIS [None]
